FAERS Safety Report 19825547 (Version 1)
Quarter: 2021Q3

REPORT INFORMATION
  Report Type: Spontaneous
  Country: US (occurrence: US)
  Receive Date: 20210914
  Receipt Date: 20210914
  Transmission Date: 20211014
  Serious: Yes (Other)
  Sender: FDA-Public Use
  Company Number: None

PATIENT
  Age: 32 Year
  Sex: Male
  Weight: 56.25 kg

DRUGS (5)
  1. QUETIAPINE. [Concomitant]
     Active Substance: QUETIAPINE
  2. TRAZODONE [Concomitant]
     Active Substance: TRAZODONE HYDROCHLORIDE
  3. SUBOXONE [Concomitant]
     Active Substance: BUPRENORPHINE HYDROCHLORIDE\NALOXONE HYDROCHLORIDE
  4. QUETIAPINE FULMARATE [Suspect]
     Active Substance: QUETIAPINE FUMARATE
     Indication: INSOMNIA
     Dosage: ?          QUANTITY:1 TABLET(S);?
     Route: 048
  5. GABAPENTIN. [Concomitant]
     Active Substance: GABAPENTIN

REACTIONS (9)
  - Drug interaction [None]
  - Chest pain [None]
  - Palpitations [None]
  - Sedation [None]
  - Throat tightness [None]
  - Drug dependence [None]
  - Asthma [None]
  - Anxiety [None]
  - Depression [None]

NARRATIVE: CASE EVENT DATE: 20210913
